FAERS Safety Report 6401523-6 (Version None)
Quarter: 2009Q4

REPORT INFORMATION
  Report Type: 
  Country: None (occurrence: None)
  Receive Date: 20091013
  Receipt Date: 20091013
  Transmission Date: 20100525
  Serious: Yes (Other)
  Sender: FDA-Public Use
  Company Number: None

PATIENT
  Age: 57 Year
  Sex: Male
  Weight: 83.4619 kg

DRUGS (1)
  1. LISINOPRIL [Suspect]
     Indication: HYPERTENSION
     Dosage: 5ML 1/DAY
     Dates: start: 20090715, end: 20090801

REACTIONS (4)
  - COUGH [None]
  - DIZZINESS [None]
  - HALLUCINATION, VISUAL [None]
  - OROPHARYNGEAL PAIN [None]
